FAERS Safety Report 10332352 (Version 1)
Quarter: 2014Q3

REPORT INFORMATION
  Report Type: Spontaneous
  Country: US (occurrence: US)
  Receive Date: 20140722
  Receipt Date: 20140722
  Transmission Date: 20150326
  Serious: No
  Sender: FDA-Public Use
  Company Number: US-ASTRAZENECA-2014SE29284

PATIENT
  Sex: Male

DRUGS (2)
  1. SEROQUEL XR [Suspect]
     Active Substance: QUETIAPINE FUMARATE
     Indication: OBSESSIVE-COMPULSIVE DISORDER
     Route: 048
  2. SEROQUEL XR [Suspect]
     Active Substance: QUETIAPINE FUMARATE
     Indication: OBSESSIVE-COMPULSIVE DISORDER
     Route: 048

REACTIONS (5)
  - Anxiety [Unknown]
  - Obsessive-compulsive disorder [Unknown]
  - Off label use [Unknown]
  - Social avoidant behaviour [Unknown]
  - Irritability [Unknown]
